FAERS Safety Report 15547434 (Version 1)
Quarter: 2018Q4

REPORT INFORMATION
  Report Type: Spontaneous
  Country: MX (occurrence: MX)
  Receive Date: 20181024
  Receipt Date: 20181024
  Transmission Date: 20190205
  Serious: Yes (Other)
  Sender: FDA-Public Use
  Company Number: MX-MYLANLABS-2018M1077826

PATIENT
  Age: 39 Year
  Sex: Female

DRUGS (2)
  1. TOBRAMYCIN AND DEXAMETHASONE [Suspect]
     Active Substance: DEXAMETHASONE\TOBRAMYCIN
     Indication: BLEPHARITIS
     Dosage: EYEDROPS; FREQUENT SELF MEDICATION FOR ONE YEAR
     Route: 047
  2. PREDNISOLONE. [Suspect]
     Active Substance: PREDNISOLONE
     Indication: BLEPHARITIS
     Dosage: FREQUENT SELF MEDICATION WITH EYEDROPS FOR ONE YEAR
     Route: 047

REACTIONS (3)
  - Blindness unilateral [Recovering/Resolving]
  - Intraocular pressure increased [Recovered/Resolved]
  - Keratopathy [Recovering/Resolving]
